FAERS Safety Report 16214300 (Version 2)
Quarter: 2019Q2

REPORT INFORMATION
  Report Type: Spontaneous
  Country: US (occurrence: US)
  Receive Date: 20190418
  Receipt Date: 20190514
  Transmission Date: 20190711
  Serious: Yes (Hospitalization, Other)
  Sender: FDA-Public Use
  Company Number: US-PFIZER INC-2019166711

PATIENT
  Age: 57 Year
  Sex: Female
  Weight: 82.2 kg

DRUGS (1)
  1. CHANTIX [Suspect]
     Active Substance: VARENICLINE TARTRATE
     Indication: SMOKING CESSATION THERAPY
     Dosage: 0.5 MG, DAILY
     Route: 048
     Dates: start: 20190323, end: 20190324

REACTIONS (25)
  - Acute kidney injury [Unknown]
  - Dysphagia [Recovered/Resolved]
  - Condition aggravated [Not Recovered/Not Resolved]
  - Seizure [Unknown]
  - Vaginal haemorrhage [Unknown]
  - Waist circumference increased [Unknown]
  - Swelling face [Recovered/Resolved]
  - Hepatic cirrhosis [Unknown]
  - Bradycardia [Unknown]
  - Diarrhoea [Unknown]
  - Vomiting [Unknown]
  - Ascites [Not Recovered/Not Resolved]
  - Infection [Unknown]
  - Angioedema [Recovered/Resolved]
  - Fluid retention [Unknown]
  - Abdominal distension [Not Recovered/Not Resolved]
  - Nausea [Unknown]
  - Peritonitis bacterial [Unknown]
  - Respiratory failure [Unknown]
  - Hepatic encephalopathy [Not Recovered/Not Resolved]
  - Dyspnoea [Recovered/Resolved]
  - Hyperkalaemia [Recovered/Resolved]
  - Peripheral swelling [Recovered/Resolved]
  - Abdominal pain [Not Recovered/Not Resolved]
  - Palpitations [Unknown]

NARRATIVE: CASE EVENT DATE: 20190323
